FAERS Safety Report 17420074 (Version 2)
Quarter: 2020Q2

REPORT INFORMATION
  Report Type: Spontaneous
  Country: US (occurrence: US)
  Receive Date: 20200214
  Receipt Date: 20200527
  Transmission Date: 20200713
  Serious: Yes (Hospitalization, Other)
  Sender: FDA-Public Use
  Company Number: US-ASTRAZENECA-2020SE20558

PATIENT
  Sex: Male
  Weight: 94.3 kg

DRUGS (1)
  1. BRILINTA [Suspect]
     Active Substance: TICAGRELOR
     Indication: MYOCARDIAL INFARCTION
     Route: 048
     Dates: start: 20200127, end: 20200201

REACTIONS (2)
  - Near death experience [Recovered/Resolved]
  - Haemorrhage [Recovering/Resolving]
